FAERS Safety Report 21933433 (Version 2)
Quarter: 2023Q1

REPORT INFORMATION
  Report Type: Spontaneous
  Country: JP (occurrence: JP)
  Receive Date: 20230131
  Receipt Date: 20230309
  Transmission Date: 20230417
  Serious: Yes (Hospitalization, Other)
  Sender: FDA-Public Use
  Company Number: JP-SA-2023SA033791

PATIENT
  Age: 78 Year
  Sex: Male
  Weight: 50.5 kg

DRUGS (5)
  1. DUPIXENT [Suspect]
     Active Substance: DUPILUMAB
     Indication: Dermatitis atopic
     Dosage: 300 MG, QOW
     Route: 058
     Dates: start: 20210701, end: 20221121
  2. DUPIXENT [Suspect]
     Active Substance: DUPILUMAB
     Dosage: 600 MG, 1X
     Route: 058
     Dates: start: 20210617, end: 20210617
  3. POLAPREZINC [Concomitant]
     Active Substance: POLAPREZINC
     Indication: Hypozincaemia
     Dosage: 75 MG, BID
     Route: 048
     Dates: start: 20210701, end: 20230131
  4. MOMETASONE [Concomitant]
     Active Substance: MOMETASONE
     Indication: Rash
     Dosage: BID ON THE BODY
     Route: 061
     Dates: start: 20211223, end: 20220608
  5. DELGOCITINIB [Concomitant]
     Active Substance: DELGOCITINIB
     Indication: Rash
     Dosage: BID ON THE BODY AND FACE
     Route: 061
     Dates: start: 20220317

REACTIONS (3)
  - Follicular lymphoma [Not Recovered/Not Resolved]
  - Pruritus [Unknown]
  - Rash [Unknown]

NARRATIVE: CASE EVENT DATE: 20220501
